FAERS Safety Report 8232071-9 (Version None)
Quarter: 2012Q1

REPORT INFORMATION
  Report Type: 
  Country: None (occurrence: None)
  Receive Date: 20120323
  Receipt Date: 20120315
  Transmission Date: 20120608
  Serious: Yes (Other)
  Sender: FDA-Public Use
  Company Number: ES-B.I. PHARMACEUTICALS,INC./RIDGEFIELD-2012-ES-00110ES

PATIENT
  Age: 47 Year
  Sex: Female

DRUGS (2)
  1. SPIRIVA [Suspect]
     Indication: DYSPNOEA
     Route: 055
     Dates: start: 20120213, end: 20120214
  2. MOXIFLOXACIN [Suspect]
     Route: 048
     Dates: start: 20120213, end: 20120214

REACTIONS (3)
  - PARAESTHESIA [None]
  - FACE OEDEMA [None]
  - TONGUE OEDEMA [None]
